FAERS Safety Report 5705576-X (Version None)
Quarter: 2008Q2

REPORT INFORMATION
  Report Type: 
  Country: None (occurrence: None)
  Receive Date: 20080415
  Receipt Date: 20080401
  Transmission Date: 20081010
  Serious: Yes (Other)
  Sender: FDA-Public Use
  Company Number: DE-AMGEN-UK273312

PATIENT
  Age: 65 Year
  Sex: Female
  Weight: 50 kg

DRUGS (6)
  1. NEULASTA [Suspect]
     Indication: CHEMOTHERAPY
     Route: 058
  2. CETUXIMAB [Concomitant]
     Route: 065
  3. CYCLOPHOSPHAMIDE [Concomitant]
     Route: 065
  4. DOXORUBICIN HYDROCHLORIDE [Concomitant]
     Route: 065
  5. VINCRISTINE [Concomitant]
     Route: 065
  6. PREDNISOLONE [Concomitant]
     Route: 065

REACTIONS (8)
  - ASTHENIA [None]
  - BONE PAIN [None]
  - ERYTHEMA [None]
  - EYE SWELLING [None]
  - FEELING HOT [None]
  - HYPERSENSITIVITY [None]
  - NODULE [None]
  - PNEUMONIA [None]
